FAERS Safety Report 6453066-1 (Version None)
Quarter: 2009Q4

REPORT INFORMATION
  Report Type: 
  Country: None (occurrence: None)
  Receive Date: 20091124
  Receipt Date: 20090817
  Transmission Date: 20100525
  Serious: No
  Sender: FDA-Public Use
  Company Number: US-ABBOTT-09P-163-0592790-00

PATIENT
  Age: 60 Year
  Sex: Female

DRUGS (6)
  1. TRICOR [Suspect]
     Indication: BLOOD CHOLESTEROL INCREASED
     Dates: start: 20090626, end: 20090803
  2. UNKNOWN HEART MEDICATION [Suspect]
     Indication: CARDIAC FAILURE CONGESTIVE
  3. INSULIN [Concomitant]
     Indication: DRUG USE FOR UNKNOWN INDICATION
  4. WARFARIN SODIUM [Concomitant]
     Indication: HEART VALVE INCOMPETENCE
     Dosage: EXTRA HALF TAB ON WED, TOTAL DOSE 9MG
  5. WARFARIN SODIUM [Concomitant]
     Indication: HEART RATE IRREGULAR
     Dosage: EXCEPT WENSDAYS
  6. ORAL DIABETIC MEDICATION [Concomitant]
     Indication: DIABETES MELLITUS

REACTIONS (1)
  - MYALGIA [None]
